FAERS Safety Report 9237910 (Version 1)
Quarter: 2013Q2

REPORT INFORMATION
  Report Type: Report from Study
  Country: JP (occurrence: JP)
  Receive Date: 20130418
  Receipt Date: 20130418
  Transmission Date: 20140414
  Serious: Yes (Hospitalization, Other)
  Sender: FDA-Public Use
  Company Number: JP-CELGENEUS-087-50794-13042547

PATIENT
  Age: 68 Year
  Sex: Male
  Weight: 69 kg

DRUGS (26)
  1. VIDAZA [Suspect]
     Indication: MYELODYSPLASTIC SYNDROME
     Dosage: 75 MILLIGRAM/SQ. METER
     Route: 041
     Dates: start: 20120626, end: 20120702
  2. VIDAZA [Suspect]
     Dosage: 75 MILLIGRAM/SQ. METER
     Route: 041
     Dates: start: 20120724, end: 20120727
  3. VIDAZA [Suspect]
     Dosage: 75 MILLIGRAM/SQ. METER
     Route: 041
     Dates: start: 20120730, end: 20120801
  4. VIDAZA [Suspect]
     Dosage: 75 MILLIGRAM/SQ. METER
     Route: 041
     Dates: start: 20120904, end: 20120912
  5. VIDAZA [Suspect]
     Dosage: 75 MILLIGRAM/SQ. METER
     Route: 041
     Dates: start: 20121002, end: 20121004
  6. VIDAZA [Suspect]
     Dosage: 75 MILLIGRAM/SQ. METER
     Route: 041
     Dates: start: 20121121, end: 20121130
  7. VIDAZA [Suspect]
     Dosage: 75 MILLIGRAM/SQ. METER
     Route: 041
     Dates: start: 20130115, end: 20130123
  8. MAGMITT [Concomitant]
     Indication: PRODUCT USED FOR UNKNOWN INDICATION
     Route: 065
     Dates: end: 20120711
  9. TAKEPRON [Concomitant]
     Indication: PRODUCT USED FOR UNKNOWN INDICATION
     Route: 065
     Dates: end: 20120711
  10. TAKEPRON [Concomitant]
     Route: 065
     Dates: start: 20120826
  11. CRAVIT [Concomitant]
     Indication: PRODUCT USED FOR UNKNOWN INDICATION
     Route: 065
     Dates: end: 20120711
  12. CRAVIT [Concomitant]
     Route: 065
     Dates: start: 20120826, end: 20121001
  13. CRAVIT [Concomitant]
     Route: 065
     Dates: start: 20121009, end: 20121218
  14. CRAVIT [Concomitant]
     Route: 065
     Dates: start: 20130118, end: 20130207
  15. URSO [Concomitant]
     Indication: PRODUCT USED FOR UNKNOWN INDICATION
     Route: 065
  16. LENDORMIN [Concomitant]
     Indication: PRODUCT USED FOR UNKNOWN INDICATION
     Route: 065
     Dates: start: 20120626
  17. POSTERISAN [Concomitant]
     Indication: PRODUCT USED FOR UNKNOWN INDICATION
     Route: 065
     Dates: end: 20120704
  18. NASEA-OD [Concomitant]
     Indication: PRODUCT USED FOR UNKNOWN INDICATION
     Route: 065
     Dates: start: 20120626, end: 20120702
  19. NASEA-OD [Concomitant]
     Route: 065
     Dates: start: 20120904, end: 20120912
  20. NASEA-OD [Concomitant]
     Route: 065
     Dates: start: 20121002, end: 20121011
  21. NASEA-OD [Concomitant]
     Route: 065
     Dates: start: 20121121, end: 20121130
  22. NASEA-OD [Concomitant]
     Route: 065
     Dates: start: 20130115, end: 20130122
  23. SENNOSIDE [Concomitant]
     Indication: PRODUCT USED FOR UNKNOWN INDICATION
     Route: 065
     Dates: start: 20120628
  24. SENNOSIDE [Concomitant]
     Route: 065
     Dates: start: 20121219, end: 20121225
  25. SODIUM PICOSULFATE HYDRATE [Concomitant]
     Indication: PRODUCT USED FOR UNKNOWN INDICATION
     Route: 065
     Dates: start: 20120628
  26. POLARAMINE [Concomitant]
     Indication: PRODUCT USED FOR UNKNOWN INDICATION
     Route: 065
     Dates: start: 20120914, end: 20120914

REACTIONS (4)
  - Syncope [Recovered/Resolved]
  - Platelet count decreased [Not Recovered/Not Resolved]
  - White blood cell count decreased [Not Recovered/Not Resolved]
  - Neutropenia [Not Recovered/Not Resolved]
